FAERS Safety Report 15996340 (Version 12)
Quarter: 2019Q3

REPORT INFORMATION
  Report Type: Report from Study
  Country: US (occurrence: US)
  Receive Date: 20190222
  Receipt Date: 20190924
  Transmission Date: 20191004
  Serious: Yes (Hospitalization)
  Sender: FDA-Public Use
  Company Number: US-ACTELION-A-NJ2019-186606

PATIENT
  Age: 26 Year
  Sex: Female
  Weight: 52.15 kg

DRUGS (12)
  1. FLOLAN [Concomitant]
     Active Substance: EPOPROSTENOL SODIUM
  2. SPIRONOLACTONE. [Concomitant]
     Active Substance: SPIRONOLACTONE
  3. VELETRI [Suspect]
     Active Substance: EPOPROSTENOL
     Dosage: 76 NG/KG, PER MIN
     Route: 042
  4. REMODULIN [Concomitant]
     Active Substance: TREPROSTINIL
     Dosage: 110 NG/KG, PER MIN
     Route: 042
  5. OPSUMIT [Suspect]
     Active Substance: MACITENTAN
     Indication: PULMONARY ARTERIAL HYPERTENSION
     Dosage: 10 MG, QD
     Route: 048
     Dates: start: 20180714
  6. ASPIRIN 81 [Concomitant]
     Active Substance: ASPIRIN
     Dosage: 81 MG, QD
  7. VELETRI [Suspect]
     Active Substance: EPOPROSTENOL
     Indication: PULMONARY ARTERIAL HYPERTENSION
     Dosage: 100 NG/KG, PER MIN
     Route: 042
     Dates: end: 20190905
  8. POTASSIUM CHLORIDE. [Concomitant]
     Active Substance: POTASSIUM CHLORIDE
  9. FUROSEMIDE. [Concomitant]
     Active Substance: FUROSEMIDE
  10. ADCIRCA [Concomitant]
     Active Substance: TADALAFIL
  11. DIGOX [Concomitant]
     Active Substance: DIGOXIN
  12. VELETRI [Suspect]
     Active Substance: EPOPROSTENOL
     Dosage: 82 NG/KG, PER MIN
     Route: 042

REACTIONS (14)
  - Device alarm issue [Unknown]
  - Catheter management [Unknown]
  - Hospitalisation [Not Recovered/Not Resolved]
  - Fluid retention [Unknown]
  - Pain in jaw [Unknown]
  - Therapy change [Not Recovered/Not Resolved]
  - Dyspnoea [Unknown]
  - Device failure [Recovered/Resolved]
  - Erythema [Unknown]
  - Device occlusion [Unknown]
  - Catheter site infection [Unknown]
  - Blood potassium decreased [Unknown]
  - Device dislocation [Unknown]
  - Diagnostic procedure [Unknown]

NARRATIVE: CASE EVENT DATE: 20190317
